FAERS Safety Report 13472728 (Version 1)
Quarter: 2017Q2

REPORT INFORMATION
  Report Type: Report from Study
  Country: DE (occurrence: DE)
  Receive Date: 20170424
  Receipt Date: 20170424
  Transmission Date: 20170830
  Serious: Yes (Other)
  Sender: FDA-Public Use
  Company Number: DE-ROCHE-1923639

PATIENT

DRUGS (3)
  1. HIRUDIN [Suspect]
     Active Substance: HIRUDIN
     Indication: ACUTE MYOCARDIAL INFARCTION
     Dosage: 0.07MG/KG BODY WEIGHT
     Route: 040
  2. ALTEPLASE [Suspect]
     Active Substance: ALTEPLASE
     Dosage: 50 MG OVER 30 MIN AND 35 MG OVER THE FOLLOWING 60 MIN
     Route: 041
  3. ALTEPLASE [Suspect]
     Active Substance: ALTEPLASE
     Indication: ACUTE MYOCARDIAL INFARCTION
     Route: 040

REACTIONS (1)
  - Retroperitoneal haemorrhage [Unknown]
